FAERS Safety Report 5493146-0 (Version None)
Quarter: 2007Q4

REPORT INFORMATION
  Report Type: 
  Country: None (occurrence: None)
  Receive Date: 20071023
  Receipt Date: 20071010
  Transmission Date: 20080405
  Serious: Yes (Other)
  Sender: FDA-Public Use
  Company Number: US-AMGEN-QUU247338

PATIENT
  Sex: Male

DRUGS (2)
  1. ENBREL [Suspect]
     Indication: PSORIATIC ARTHROPATHY
     Route: 058
     Dates: start: 20070301
  2. LOTREL [Concomitant]

REACTIONS (6)
  - DRUG INTERACTION [None]
  - DYSGEUSIA [None]
  - HYPOAESTHESIA [None]
  - OEDEMA [None]
  - VISUAL DISTURBANCE [None]
  - WEIGHT INCREASED [None]
